FAERS Safety Report 7326825-0 (Version None)
Quarter: 2011Q1

REPORT INFORMATION
  Report Type: 
  Country: None (occurrence: None)
  Receive Date: 20110302
  Receipt Date: 20100114
  Transmission Date: 20110831
  Serious: Yes (Hospitalization)
  Sender: FDA-Public Use
  Company Number: US-PFIZER INC-2010006825

PATIENT
  Sex: Male
  Weight: 61.224 kg

DRUGS (2)
  1. DILANTIN-125 [Suspect]
     Indication: CONVULSION
     Dosage: UNK
     Dates: start: 19960101
  2. CARBIDOPA [Concomitant]
     Dosage: UNK

REACTIONS (2)
  - DRUG INEFFECTIVE [None]
  - CONVULSION [None]
